FAERS Safety Report 8071503-6 (Version None)
Quarter: 2012Q1

REPORT INFORMATION
  Report Type: 
  Country: None (occurrence: None)
  Receive Date: 20120125
  Receipt Date: 20120119
  Transmission Date: 20120608
  Serious: Yes (Other)
  Sender: FDA-Public Use
  Company Number: US-ASTRAZENECA-2012SE04067

PATIENT
  Sex: Female

DRUGS (2)
  1. SEROQUEL XR [Suspect]
     Route: 048
  2. IMIPRAMINE [Concomitant]
     Indication: DEPRESSION
     Dates: start: 19790101, end: 20120101

REACTIONS (3)
  - SUICIDAL BEHAVIOUR [None]
  - DRUG DOSE OMISSION [None]
  - ABNORMAL BEHAVIOUR [None]
